FAERS Safety Report 6609139-3 (Version None)
Quarter: 2010Q1

REPORT INFORMATION
  Report Type: 
  Country: None (occurrence: None)
  Receive Date: 20100226
  Receipt Date: 20100226
  Transmission Date: 20100710
  Serious: Yes (Hospitalization)
  Sender: FDA-Public Use
  Company Number: None

PATIENT
  Age: 64 Year
  Sex: Female
  Weight: 58.9676 kg

DRUGS (1)
  1. BUDEPRION SR 150 MG IMPAX [Suspect]
     Indication: DEPRESSIVE SYMPTOM
     Dosage: ONE DAILY PO
     Route: 048
     Dates: start: 20050201, end: 20100220

REACTIONS (8)
  - ABDOMINAL DISCOMFORT [None]
  - CONVULSION [None]
  - DECREASED APPETITE [None]
  - DEHYDRATION [None]
  - FATIGUE [None]
  - HEADACHE [None]
  - HYPOPHAGIA [None]
  - VIRAL INFECTION [None]
